FAERS Safety Report 5838857-X (Version None)
Quarter: 2008Q3

REPORT INFORMATION
  Report Type: 
  Country: None (occurrence: None)
  Receive Date: 20080808
  Receipt Date: 20080605
  Transmission Date: 20090109
  Serious: No
  Sender: FDA-Public Use
  Company Number: US-ABBOTT-08P-163-0455870-00

PATIENT
  Sex: Female
  Weight: 48.578 kg

DRUGS (2)
  1. KALETRA [Suspect]
     Indication: PROPHYLAXIS AGAINST HIV INFECTION
     Dosage: 100/25MG - 2 TWICE A DAY (UNIT DOSE)
     Dates: start: 20080301, end: 20080401
  2. COMBOVIR [Concomitant]
     Indication: PROPHYLAXIS AGAINST HIV INFECTION
     Dosage: 150MG/300MG BID
     Route: 048
     Dates: start: 20080301, end: 20080401

REACTIONS (2)
  - BACK PAIN [None]
  - NAIL DISCOLOURATION [None]
